FAERS Safety Report 6671034-1 (Version None)
Quarter: 2010Q2

REPORT INFORMATION
  Report Type: 
  Country: None (occurrence: None)
  Receive Date: 20100407
  Receipt Date: 20100324
  Transmission Date: 20101027
  Serious: Yes (Hospitalization)
  Sender: FDA-Public Use
  Company Number: US-WATSON-2010-04205

PATIENT
  Age: 14 Year
  Sex: Male

DRUGS (1)
  1. VERAPAMIL HCL [Suspect]
     Indication: OVERDOSE
     Dosage: 5400 MG, SINGLE (30 X 180MG TABLETS)
     Route: 048

REACTIONS (2)
  - LACTIC ACIDOSIS [None]
  - OVERDOSE [None]
